FAERS Safety Report 5933472-1 (Version None)
Quarter: 2008Q4

REPORT INFORMATION
  Report Type: 
  Country: None (occurrence: None)
  Receive Date: 20081024
  Receipt Date: 20081009
  Transmission Date: 20090506
  Serious: Yes (Other)
  Sender: FDA-Public Use
  Company Number: 034388

PATIENT
  Sex: Female

DRUGS (9)
  1. TRAZODONE HCL [Suspect]
     Indication: DEPRESSION
     Dosage: 50 MG, QD, ORAL
     Route: 048
     Dates: start: 20010101, end: 20080901
  2. SEROQUEL [Concomitant]
  3. PROZAC [Concomitant]
  4. TRILEPTAL [Concomitant]
  5. AVAPRO [Concomitant]
  6. ALLERGY MEDICATION [Concomitant]
  7. PREVACID [Concomitant]
  8. ACCOLATE [Concomitant]
  9. PIROXICAM [Concomitant]

REACTIONS (2)
  - RESTLESS LEGS SYNDROME [None]
  - SOMNAMBULISM [None]
